FAERS Safety Report 5019542-3 (Version None)
Quarter: 2006Q2

REPORT INFORMATION
  Report Type: 
  Country: None (occurrence: None)
  Receive Date: 20060601
  Receipt Date: 20060523
  Transmission Date: 20061013
  Serious: Yes (Hospitalization)
  Sender: FDA-Public Use
  Company Number: 2006067606

PATIENT
  Age: 87 Year
  Sex: Male
  Weight: 60.782 kg

DRUGS (16)
  1. NATURAL CITRUS LISTERINE (MENTHOL, METHYL SALICYLATE, EUCALYPTOL, THYM [Suspect]
     Indication: DENTAL DISORDER PROPHYLAXIS
     Dosage: A MOUTHFUL 4 OR 5 TIMES A DAY, ORAL
     Route: 048
     Dates: end: 20060501
  2. WARFARIN SODIUM [Concomitant]
  3. ROSIGLITAZONE MALEATE [Concomitant]
  4. FOSINOPRIL SODIUM [Concomitant]
  5. DOCUSATE (DOCUSATE) [Concomitant]
  6. ASPIRIN [Concomitant]
  7. OCUVITE (ASCORBIC ACID, RETINOL, TOCUPHEROL) [Concomitant]
  8. OMEPRAZOLE [Concomitant]
  9. SERTRALINE HCL [Concomitant]
  10. METFORMIN [Concomitant]
  11. DIGOXIN [Concomitant]
  12. DOXAZOSIN (DOXAZOSIN) [Concomitant]
  13. POLYSACCHARIDE-IRON COMPLEX (POLYSACCHARIDE-IRON COMPLEX) [Concomitant]
  14. GLIPIZIDE [Concomitant]
  15. LANSOPRAZOLE [Concomitant]
  16. ISOSORBIDE DINITRATE [Concomitant]

REACTIONS (7)
  - ASTHENIA [None]
  - GASTRIC DISORDER [None]
  - GASTRIC HAEMORRHAGE [None]
  - HAEMOGLOBIN DECREASED [None]
  - HAEMORRHAGE [None]
  - INCORRECT ROUTE OF DRUG ADMINISTRATION [None]
  - STOMACH DISCOMFORT [None]
